FAERS Safety Report 9460525 (Version 2)
Quarter: 2020Q3

REPORT INFORMATION
  Report Type: Spontaneous
  Country: GB (occurrence: GB)
  Receive Date: 20130815
  Receipt Date: 20140211
  Transmission Date: 20201104
  Serious: Yes (Hospitalization, Disabling)
  Sender: FDA-Public Use
  Company Number: GB-WATSON-2013-14579

PATIENT
  Sex: Female

DRUGS (3)
  1. IBANDRONIC ACID. [Suspect]
     Active Substance: IBANDRONIC ACID
     Indication: OSTEOPOROSIS
     Dosage: ONCE 6 MONTHLY TYPE, JULY OR AUG 2011
     Route: 042
     Dates: end: 2011
  2. NORTRIPTYLINE [Concomitant]
     Active Substance: NORTRIPTYLINE
     Indication: PRODUCT USED FOR UNKNOWN INDICATION
     Dosage: UNK
     Route: 065
     Dates: start: 201302
  3. ALENDRONATE SODIUM? (UNKNOWN) [Suspect]
     Active Substance: ALENDRONATE SODIUM
     Indication: OSTEOPOROSIS
     Dosage: TAKEN FOR A FEW WEEKS
     Route: 048
     Dates: start: 2011, end: 2011

REACTIONS (12)
  - Hypersensitivity [Unknown]
  - Palpitations [Unknown]
  - Disability [Unknown]
  - Feeling abnormal [Unknown]
  - Malaise [Unknown]
  - Diarrhoea [Unknown]
  - Paraesthesia [Unknown]
  - Rash [Unknown]
  - Dysaesthesia [Unknown]
  - Dysphagia [Unknown]
  - Herpes zoster [Unknown]
  - Back pain [Unknown]

NARRATIVE: CASE EVENT DATE: 2011
